FAERS Safety Report 10914197 (Version 1)
Quarter: 2015Q1

REPORT INFORMATION
  Report Type: Report from Study
  Country: JP (occurrence: JP)
  Receive Date: 20150313
  Receipt Date: 20150313
  Transmission Date: 20150721
  Serious: Yes (Hospitalization, Other)
  Sender: FDA-Public Use
  Company Number: PHJP2015JP002471

PATIENT
  Age: 7 Year
  Sex: Male

DRUGS (26)
  1. ACZ885 [Suspect]
     Active Substance: CANAKINUMAB
     Dosage: 144 MG, UNK
     Route: 058
     Dates: start: 20130501
  2. ACZ885 [Suspect]
     Active Substance: CANAKINUMAB
     Dosage: 144 MG, UNK
     Route: 058
     Dates: start: 20130629
  3. NEORAL-SANDIMMUN [Concomitant]
     Indication: CHRONIC INFANTILE NEUROLOGICAL CUTANEOUS AND ARTICULAR SYNDROME
     Dosage: UNK
     Route: 048
  4. GAMMAGLOBULIN [Concomitant]
     Active Substance: HUMAN IMMUNOGLOBULIN G
     Indication: PRODUCT USED FOR UNKNOWN INDICATION
     Dosage: 2.5 G, UNK
     Route: 065
     Dates: start: 20130331, end: 20130401
  5. ACZ885 [Suspect]
     Active Substance: CANAKINUMAB
     Dosage: 150 MG, UNK
     Route: 058
     Dates: start: 20131016
  6. SANDIMMUNE [Concomitant]
     Active Substance: CYCLOSPORINE
     Indication: PRODUCT USED FOR UNKNOWN INDICATION
     Dosage: 40 MG, UNK
     Route: 065
     Dates: start: 20130322, end: 20130331
  7. AMBISOME [Concomitant]
     Active Substance: AMPHOTERICIN B
     Dosage: 100 MG, UNK
     Route: 042
     Dates: start: 20130926, end: 20131021
  8. ACZ885 [Suspect]
     Active Substance: CANAKINUMAB
     Dosage: 144 MG, UNK
     Route: 058
     Dates: start: 20130601
  9. ACZ885 [Suspect]
     Active Substance: CANAKINUMAB
     Dosage: 144 MG, UNK
     Route: 058
     Dates: start: 20130910
  10. ACZ885 [Suspect]
     Active Substance: CANAKINUMAB
     Dosage: 150 MG, UNK
     Route: 058
     Dates: start: 20131211
  11. ACZ885 [Suspect]
     Active Substance: CANAKINUMAB
     Dosage: 112.5 MG, UNK
     Route: 058
     Dates: start: 20130310
  12. ACZ885 [Suspect]
     Active Substance: CANAKINUMAB
     Dosage: 112.5 MG, UNK
     Route: 058
     Dates: start: 20130402
  13. ACZ885 [Suspect]
     Active Substance: CANAKINUMAB
     Dosage: 144 MG, UNK
     Route: 058
     Dates: start: 20130720
  14. ACZ885 [Suspect]
     Active Substance: CANAKINUMAB
     Dosage: 150 MG, UNK
     Route: 058
     Dates: start: 20131113
  15. PROGRAF [Suspect]
     Active Substance: TACROLIMUS\TACROLIMUS ANHYDROUS
     Indication: CHRONIC INFANTILE NEUROLOGICAL CUTANEOUS AND ARTICULAR SYNDROME
     Dosage: 1 MG, UNK
     Route: 048
     Dates: start: 20131101
  16. NEORAL-SANDIMMUN [Concomitant]
     Dosage: 100 MG, UNK
     Route: 048
     Dates: start: 20120508, end: 20130514
  17. METHOTREXATE [Concomitant]
     Active Substance: METHOTREXATE
     Dosage: 7.5 MG, UNK
     Route: 048
     Dates: start: 20120409, end: 20130125
  18. ACZ885 [Suspect]
     Active Substance: CANAKINUMAB
     Dosage: 144 MG, UNK
     Route: 058
     Dates: start: 20130813
  19. ACTEMRA [Concomitant]
     Active Substance: TOCILIZUMAB
     Indication: CHRONIC INFANTILE NEUROLOGICAL CUTANEOUS AND ARTICULAR SYNDROME
     Dosage: UNK
     Route: 065
     Dates: start: 20120803, end: 20130111
  20. PREDNISOLONE. [Concomitant]
     Active Substance: PREDNISOLONE
     Indication: CHRONIC INFANTILE NEUROLOGICAL CUTANEOUS AND ARTICULAR SYNDROME
     Dosage: 1 %, UNK
     Route: 048
  21. METHOTREXATE [Concomitant]
     Active Substance: METHOTREXATE
     Indication: CHRONIC INFANTILE NEUROLOGICAL CUTANEOUS AND ARTICULAR SYNDROME
     Dosage: UNK
     Route: 048
  22. AMBISOME [Concomitant]
     Active Substance: AMPHOTERICIN B
     Indication: PNEUMONIA
     Dosage: 80 MG, UNK
     Route: 042
     Dates: start: 20130321, end: 20130430
  23. SOLU-MEDROL [Concomitant]
     Active Substance: METHYLPREDNISOLONE SODIUM SUCCINATE
     Indication: PRODUCT USED FOR UNKNOWN INDICATION
     Dosage: 600 MG, UNK
     Route: 065
     Dates: start: 20130331, end: 20130402
  24. ACZ885 [Suspect]
     Active Substance: CANAKINUMAB
     Indication: CHRONIC INFANTILE NEUROLOGICAL CUTANEOUS AND ARTICULAR SYNDROME
     Dosage: 37.5 MG, UNK
     Route: 058
     Dates: start: 20130125
  25. ACZ885 [Suspect]
     Active Substance: CANAKINUMAB
     Dosage: 75 MG, UNK
     Route: 058
     Dates: start: 20130215
  26. PREDONINE [Suspect]
     Active Substance: PREDNISOLONE\PREDNISOLONE ACETATE\PREDNISOLONE SODIUM SUCCINATE
     Indication: CHRONIC INFANTILE NEUROLOGICAL CUTANEOUS AND ARTICULAR SYNDROME
     Dosage: 8 MG, QD
     Route: 048
     Dates: start: 20120409

REACTIONS (11)
  - Anaemia [Unknown]
  - Cough [Unknown]
  - Pneumonia [Recovering/Resolving]
  - Neutropenia [Recovered/Resolved]
  - Platelet count decreased [Unknown]
  - Bone marrow failure [Unknown]
  - Hypertriglyceridaemia [Not Recovered/Not Resolved]
  - Hepatic function abnormal [Unknown]
  - Histiocytosis haematophagic [Recovered/Resolved]
  - Hepatic function abnormal [Recovered/Resolved]
  - Hypercholesterolaemia [Not Recovered/Not Resolved]

NARRATIVE: CASE EVENT DATE: 20130926
